FAERS Safety Report 19680351 (Version 1)
Quarter: 2021Q3

REPORT INFORMATION
  Report Type: Spontaneous
  Country: IT (occurrence: IT)
  Receive Date: 20210810
  Receipt Date: 20210810
  Transmission Date: 20211014
  Serious: Yes (Hospitalization, Other)
  Sender: FDA-Public Use
  Company Number: IT-TAKEDA-2012BAX012103

PATIENT
  Age: 42 Year
  Sex: Male

DRUGS (2)
  1. HUMAN NORMAL IMMUNOGLOBULIN [Suspect]
     Active Substance: HUMAN IMMUNOGLOBULIN G
     Indication: DEMYELINATING POLYNEUROPATHY
     Dosage: UNK
     Route: 065
  2. KIOVIG [Suspect]
     Active Substance: HUMAN IMMUNOGLOBULIN G
     Indication: PRODUCT USED FOR UNKNOWN INDICATION
     Route: 065

REACTIONS (4)
  - Splenic vein thrombosis [Unknown]
  - Inferior vena cava syndrome [Unknown]
  - Portal vein thrombosis [Unknown]
  - Intestinal infarction [Unknown]
